FAERS Safety Report 4870538-1 (Version None)
Quarter: 2005Q4

REPORT INFORMATION
  Report Type: 
  Country: None (occurrence: None)
  Receive Date: 20051228
  Receipt Date: 20051213
  Transmission Date: 20060501
  Serious: Yes (Hospitalization, Other)
  Sender: FDA-Public Use
  Company Number: US-2005-026720

PATIENT
  Age: 51 Year
  Sex: Female
  Weight: 58 kg

DRUGS (16)
  1. CAMPATH [Suspect]
     Indication: GRAFT VERSUS HOST DISEASE
     Dosage: 30 MG, 1 DOSE, INTRAVENOUS
     Route: 042
     Dates: start: 20051103, end: 20051105
  2. CAMPATH [Suspect]
     Indication: GRAFT VERSUS HOST DISEASE
     Dosage: 30 MG, 1 DOSE, INTRAVENOUS
     Route: 042
     Dates: start: 20051119, end: 20051119
  3. CAMPATH [Suspect]
     Indication: GRAFT VERSUS HOST DISEASE
     Dosage: 30 MG, 1 DOSE, INTRAVENOUS
     Route: 042
     Dates: start: 20051202, end: 20051202
  4. CYCLOSPORINE [Suspect]
     Indication: PROPHYLAXIS AGAINST TRANSPLANT REJECTION
     Dosage: 75 MG, 1X/DAY AM, ORAL  : 50 MG, 1X/DAY PM, ORAL
     Route: 048
     Dates: start: 20050927
  5. CYCLOSPORINE [Suspect]
     Indication: PROPHYLAXIS AGAINST TRANSPLANT REJECTION
     Dosage: 75 MG, 1X/DAY AM, ORAL  : 50 MG, 1X/DAY PM, ORAL
     Route: 048
     Dates: start: 20050927
  6. PREVACID [Concomitant]
  7. ACYCLOVIR [Concomitant]
  8. NORVASC /DEN/ (AMLODIPINE BESILATE) [Concomitant]
  9. LEVOTHYROXINE SODIUM [Concomitant]
  10. ZYPREXA [Concomitant]
  11. PAXIL [Concomitant]
  12. HALDOL [Concomitant]
  13. ATIVAN [Concomitant]
  14. CIPROFLOXACIN [Concomitant]
  15. FLUCONAZOLE VS VORICONAZOLE (RANDOMIZED DOUBLE-BLIND STUDY) [Concomitant]
  16. ADALAT [Concomitant]

REACTIONS (8)
  - BRAIN STEM SYNDROME [None]
  - CEREBRAL ISCHAEMIA [None]
  - CONFUSIONAL STATE [None]
  - DEMYELINATION [None]
  - ENCEPHALITIS BRAIN STEM [None]
  - MICROANGIOPATHY [None]
  - RENAL FAILURE ACUTE [None]
  - THERAPEUTIC AGENT TOXICITY [None]
